FAERS Safety Report 20533521 (Version 1)
Quarter: 2022Q1

REPORT INFORMATION
  Report Type: Spontaneous
  Country: US (occurrence: None)
  Receive Date: 20220301
  Receipt Date: 20220301
  Transmission Date: 20220423
  Serious: No
  Sender: FDA-Public Use
  Company Number: None

PATIENT
  Age: 22 Year
  Sex: Male
  Weight: 72 kg

DRUGS (4)
  1. DUTASTERIDE [Suspect]
     Active Substance: DUTASTERIDE
     Indication: Hidradenitis
     Dosage: OTHER QUANTITY : 1 CAPSULE(S);?FREQUENCY : DAILY;?
     Route: 048
     Dates: start: 20210701
  2. DOXYCYCLINE [Concomitant]
     Active Substance: DOXYCYCLINE
  3. ZINC [Concomitant]
     Active Substance: ZINC
  4. METFORMIN [Concomitant]
     Active Substance: METFORMIN HYDROCHLORIDE

REACTIONS (1)
  - Erectile dysfunction [None]

NARRATIVE: CASE EVENT DATE: 20220115
